FAERS Safety Report 14568161 (Version 6)
Quarter: 2018Q4

REPORT INFORMATION
  Report Type: Report from Study
  Country: CA (occurrence: CA)
  Receive Date: 20180223
  Receipt Date: 20181010
  Transmission Date: 20190204
  Serious: Yes (Other)
  Sender: FDA-Public Use
  Company Number: CA-BRISTOL-MYERS SQUIBB COMPANY-BMS-2017-041043

PATIENT
  Age: 67 Year
  Sex: Female

DRUGS (3)
  1. OXYCODONE [Suspect]
     Active Substance: OXYCODONE
     Indication: PRODUCT USED FOR UNKNOWN INDICATION
     Dosage: 15 MG, UNK
     Route: 065
  2. OXYCODONE [Suspect]
     Active Substance: OXYCODONE
     Indication: PRODUCT USED FOR UNKNOWN INDICATION
     Dosage: 10 MG, UNK
     Route: 065
  3. ABATACEPT [Suspect]
     Active Substance: ABATACEPT
     Indication: RHEUMATOID ARTHRITIS
     Dosage: 750 MG, Q4WK, 3 VIALS
     Route: 042
     Dates: start: 20140430

REACTIONS (13)
  - Vertigo [Unknown]
  - Bronchitis [Unknown]
  - Erythema [Recovered/Resolved]
  - Arthralgia [Unknown]
  - Drug withdrawal syndrome [Unknown]
  - Malaise [Unknown]
  - Fungal infection [Unknown]
  - Hot flush [Unknown]
  - Infusion site reaction [Recovered/Resolved]
  - Inner ear disorder [Recovered/Resolved]
  - Bronchial oedema [Unknown]
  - Pruritus [Recovered/Resolved]
  - Rash [Recovered/Resolved]

NARRATIVE: CASE EVENT DATE: 20170508
